FAERS Safety Report 19096171 (Version 6)
Quarter: 2021Q3

REPORT INFORMATION
  Report Type: Report from Study
  Country: US (occurrence: US)
  Receive Date: 20210406
  Receipt Date: 20210707
  Transmission Date: 20211014
  Serious: No
  Sender: FDA-Public Use
  Company Number: US-B.I. PHARMACEUTICALS,INC./RIDGEFIELD-2021-BI-088807

PATIENT
  Age: 61 Year
  Sex: Female

DRUGS (2)
  1. IMODIUM [Suspect]
     Active Substance: LOPERAMIDE HYDROCHLORIDE
     Indication: DIARRHOEA
     Route: 065
  2. OFEV [Suspect]
     Active Substance: NINTEDANIB
     Indication: PULMONARY FIBROSIS
     Dosage: TAKE ONE BY MOUTH TWICE DAILY
     Route: 048
     Dates: start: 20210305

REACTIONS (10)
  - Hepatic enzyme abnormal [Not Recovered/Not Resolved]
  - Diarrhoea [Not Recovered/Not Resolved]
  - Abdominal pain [Unknown]
  - Weight decreased [Recovered/Resolved]
  - Diarrhoea [Unknown]
  - Liver function test increased [Unknown]
  - Blood pressure increased [Not Recovered/Not Resolved]
  - Constipation [Recovered/Resolved]
  - Frequent bowel movements [Unknown]
  - Abdominal pain upper [Unknown]

NARRATIVE: CASE EVENT DATE: 202102
